FAERS Safety Report 21313899 (Version 2)
Quarter: 2023Q4

REPORT INFORMATION
  Report Type: Spontaneous
  Country: US (occurrence: US)
  Receive Date: 20220909
  Receipt Date: 20231211
  Transmission Date: 20240109
  Serious: No
  Sender: FDA-Public Use
  Company Number: US-VERTEX PHARMACEUTICALS-2022-013123

PATIENT
  Sex: Male

DRUGS (2)
  1. TRIKAFTA [Suspect]
     Active Substance: ELEXACAFTOR\IVACAFTOR\TEZACAFTOR
     Indication: Cystic fibrosis
     Dosage: UNK FREQ
     Route: 048
     Dates: start: 20200430
  2. TRIKAFTA [Suspect]
     Active Substance: ELEXACAFTOR\IVACAFTOR\TEZACAFTOR
     Dosage: 1 AM PILL AND THEN PM DOSE
     Route: 048

REACTIONS (1)
  - Hepatic enzyme increased [Unknown]
